FAERS Safety Report 7230906-X (Version None)
Quarter: 2011Q1

REPORT INFORMATION
  Report Type: 
  Country: None (occurrence: None)
  Receive Date: 20110118
  Receipt Date: 20110111
  Transmission Date: 20110831
  Serious: Yes (Death, Other)
  Sender: FDA-Public Use
  Company Number: IN-BAXTER-2010BH025450

PATIENT
  Age: 22 Month
  Sex: Male

DRUGS (1)
  1. DIANEAL PD-2 W/ DEXTROSE 1.5% [Suspect]
     Indication: PERITONEAL DIALYSIS
     Route: 033
     Dates: start: 20101008, end: 20101015

REACTIONS (3)
  - DEATH [None]
  - PERITONEAL DIALYSIS COMPLICATION [None]
  - PERITONITIS [None]
